FAERS Safety Report 9856766 (Version 2)
Quarter: 2014Q3

REPORT INFORMATION
  Report Type: Spontaneous
  Country: US (occurrence: US)
  Receive Date: 20140130
  Receipt Date: 20140725
  Transmission Date: 20150326
  Serious: Yes (Hospitalization, Other)
  Sender: FDA-Public Use
  Company Number: US-009507513-1401USA010071

PATIENT
  Sex: Female
  Weight: 68.93 kg

DRUGS (1)
  1. NUVARING [Suspect]
     Active Substance: ETHINYL ESTRADIOL\ETONOGESTREL
     Indication: CONTRACEPTION
     Dosage: INSERT 1 RING EVERY MONTH
     Route: 067
     Dates: start: 2008, end: 20100812

REACTIONS (9)
  - Deep vein thrombosis [Unknown]
  - Headache [Unknown]
  - Headache [Recovering/Resolving]
  - Pulmonary embolism [Unknown]
  - Rhinitis allergic [Unknown]
  - Intracranial venous sinus thrombosis [Unknown]
  - Reproductive tract disorder [Unknown]
  - Dysuria [Unknown]
  - Asthma [Unknown]

NARRATIVE: CASE EVENT DATE: 2008
